FAERS Safety Report 8982973 (Version 2)
Quarter: 2013Q1

REPORT INFORMATION
  Report Type: Spontaneous
  Country: US (occurrence: US)
  Receive Date: 20121224
  Receipt Date: 20130225
  Transmission Date: 20140127
  Serious: Yes (Death)
  Sender: FDA-Public Use
  Company Number: PHEH2012US025134

PATIENT
  Age: 54 Year
  Sex: Female
  Weight: 63.5 kg

DRUGS (1)
  1. AFINITOR [Suspect]
     Indication: RENAL NEOPLASM
     Dosage: 10 MG, DAILY
     Route: 048
     Dates: start: 20121022

REACTIONS (1)
  - Death [Fatal]
